FAERS Safety Report 8838078 (Version 1)
Quarter: 2012Q4

REPORT INFORMATION
  Report Type: 
  Country: GB (occurrence: GB)
  Receive Date: 20121012
  Receipt Date: 20121012
  Transmission Date: 20130627
  Serious: Yes (Hospitalization)
  Sender: FDA-Public Use
  Company Number: GB-ASTELLAS-2012EU005091

PATIENT
  Sex: Male
  Weight: 63 kg

DRUGS (1)
  1. VESICARE [Suspect]
     Indication: BLADDER DISORDER
     Dosage: 5 mg, UID/QD
     Route: 048
     Dates: start: 20120622

REACTIONS (3)
  - Fatigue [Unknown]
  - Nightmare [Unknown]
  - Hallucination [Unknown]
